FAERS Safety Report 5337072-6 (Version None)
Quarter: 2007Q2

REPORT INFORMATION
  Report Type: 
  Country: None (occurrence: None)
  Receive Date: 20070529
  Receipt Date: 20070525
  Transmission Date: 20071010
  Serious: Yes (Other)
  Sender: FDA-Public Use
  Company Number: BR-BRISTOL-MYERS SQUIBB COMPANY-13794565

PATIENT
  Age: 86 Year
  Sex: Female
  Weight: 62 kg

DRUGS (4)
  1. TEQUIN [Suspect]
     Indication: INFECTION
     Route: 048
     Dates: start: 20070501, end: 20070501
  2. GLYBURIDE [Concomitant]
     Indication: DIABETES MELLITUS
  3. VITAMIN E [Concomitant]
     Route: 048
  4. CITONEURIN [Concomitant]

REACTIONS (2)
  - HYPOGLYCAEMIA [None]
  - VOMITING [None]
